FAERS Safety Report 6812991-X (Version None)
Quarter: 2010Q3

REPORT INFORMATION
  Report Type: 
  Country: None (occurrence: None)
  Receive Date: 20100701
  Receipt Date: 20100625
  Transmission Date: 20110219
  Serious: Yes (Other)
  Sender: FDA-Public Use
  Company Number: US-PFIZER INC-2010080530

PATIENT
  Sex: Female

DRUGS (10)
  1. GENOTROPIN [Suspect]
     Indication: HYPOPITUITARISM
     Dosage: 0.4 MG, DAILY
     Dates: start: 20090331
  2. MAXAIR [Concomitant]
     Dosage: UNK
  3. METFORMIN [Concomitant]
     Dosage: UNK
  4. ASTELIN [Concomitant]
     Dosage: UNK
     Route: 045
  5. LEXAPRO [Concomitant]
     Dosage: UNK
  6. KLONOPIN [Concomitant]
     Dosage: UNK
  7. SYNTHROID [Concomitant]
     Dosage: 125 UG, UNK
  8. SUMATRIPTAN SUCCINATE (IMITREX) [Concomitant]
     Dosage: UNK
  9. VITAMIN D [Concomitant]
     Dosage: UNK
  10. CRESTOR [Concomitant]
     Dosage: UNK

REACTIONS (1)
  - ENDOMETRIAL DISORDER [None]
